FAERS Safety Report 20189769 (Version 1)
Quarter: 2021Q4

REPORT INFORMATION
  Report Type: Spontaneous
  Country: US (occurrence: US)
  Receive Date: 20211215
  Receipt Date: 20211215
  Transmission Date: 20220303
  Serious: Yes (Hospitalization, Other)
  Sender: FDA-Public Use
  Company Number: US-GILEAD-2021-0560540

PATIENT
  Age: 62 Year
  Sex: Female

DRUGS (7)
  1. SOFOSBUVIR\VELPATASVIR [Suspect]
     Active Substance: SOFOSBUVIR\VELPATASVIR
     Indication: Chronic hepatitis C
     Dosage: 1 DOSAGE FORM, QD
     Route: 048
  2. ATORVASTATIN CALCIUM [Concomitant]
     Active Substance: ATORVASTATIN CALCIUM
  3. PANTOPRAZOLE SODIUM [Concomitant]
     Active Substance: PANTOPRAZOLE SODIUM
  4. ASPIRIN [Concomitant]
     Active Substance: ASPIRIN
  5. LACTULOSE [Concomitant]
     Active Substance: LACTULOSE
  6. MIDODRINE HYDROCHLORIDE [Concomitant]
     Active Substance: MIDODRINE HYDROCHLORIDE
  7. BUMETANIDE [Concomitant]
     Active Substance: BUMETANIDE

REACTIONS (1)
  - Liver transplant [Not Recovered/Not Resolved]

NARRATIVE: CASE EVENT DATE: 20211203
